FAERS Safety Report 7036333-2 (Version None)
Quarter: 2010Q4

REPORT INFORMATION
  Report Type: 
  Country: None (occurrence: None)
  Receive Date: 20101008
  Receipt Date: 20100929
  Transmission Date: 20110411
  Serious: Yes (Other)
  Sender: FDA-Public Use
  Company Number: BE-ABBOTT-10P-013-0676418-00

PATIENT
  Sex: Female

DRUGS (1)
  1. HUMIRA [Suspect]
     Indication: RHEUMATOID ARTHRITIS
     Dates: start: 20091208, end: 20100201

REACTIONS (36)
  - ALOPECIA [None]
  - ASTHENIA [None]
  - BACK PAIN [None]
  - BALANCE DISORDER [None]
  - BRUXISM [None]
  - CHEST PAIN [None]
  - CONSTIPATION [None]
  - DISTURBANCE IN ATTENTION [None]
  - DRY SKIN [None]
  - DYSPNOEA [None]
  - DYSSTASIA [None]
  - DYSURIA [None]
  - EYE DISCHARGE [None]
  - EYE INFLAMMATION [None]
  - FACIAL PAIN [None]
  - FALL [None]
  - FATIGUE [None]
  - HEADACHE [None]
  - HYPOAESTHESIA [None]
  - JOINT STIFFNESS [None]
  - MEMORY IMPAIRMENT [None]
  - MUSCLE SPASMS [None]
  - NASAL CONGESTION [None]
  - NASAL INFLAMMATION [None]
  - PARAESTHESIA [None]
  - PERIPHERAL COLDNESS [None]
  - POLLAKIURIA [None]
  - POOR QUALITY SLEEP [None]
  - RASH PRURITIC [None]
  - SENSITIVITY OF TEETH [None]
  - SENSORY DISTURBANCE [None]
  - SKIN DISCOLOURATION [None]
  - SPUTUM DISCOLOURED [None]
  - TOOTHACHE [None]
  - VERTIGO [None]
  - VISUAL ACUITY REDUCED [None]
